FAERS Safety Report 16310048 (Version 4)
Quarter: 2019Q4

REPORT INFORMATION
  Report Type: Report from Study
  Country: JP (occurrence: JP)
  Receive Date: 20190514
  Receipt Date: 20191018
  Transmission Date: 20200122
  Serious: Yes (Death)
  Sender: FDA-Public Use
  Company Number: JP-ELI_LILLY_AND_COMPANY-JP201904011044

PATIENT
  Age: 83 Year
  Sex: Female
  Weight: 56 kg

DRUGS (16)
  1. BAKTAR [Suspect]
     Active Substance: SULFAMETHOXAZOLE\TRIMETHOPRIM
     Indication: PNEUMOCYSTIS JIROVECII PNEUMONIA
     Dosage: UNK
     Route: 065
  2. CELECOX [Concomitant]
     Active Substance: CELECOXIB
     Dosage: 200 MG, BID
  3. CILOSTAZOL. [Concomitant]
     Active Substance: CILOSTAZOL
  4. THYRADIN S [Concomitant]
     Active Substance: LEVOTHYROXINE SODIUM
  5. PRAVASTATIN SODIUM. [Concomitant]
     Active Substance: PRAVASTATIN SODIUM
  6. ENTECAVIR. [Concomitant]
     Active Substance: ENTECAVIR
  7. FLAVITAN [Concomitant]
     Active Substance: FLAVIN ADENINE DINUCLEOTIDE
  8. RHEUMATREX [Concomitant]
     Active Substance: METHOTREXATE SODIUM
     Dosage: 8 MG, WEEKLY (1/W)
  9. PREDNISOLONE. [Concomitant]
     Active Substance: PREDNISOLONE
     Dosage: 4 MG, DAILY
  10. TANATRIL [Concomitant]
     Active Substance: IMIDAPRIL
  11. NATRIX [Concomitant]
     Active Substance: INDAPAMIDE
  12. KEFRAL [Concomitant]
     Active Substance: CEFACLOR
  13. BARICITINIB [Suspect]
     Active Substance: BARICITINIB
     Indication: RHEUMATOID ARTHRITIS
     Dosage: 4 MG, DAILY
     Route: 048
     Dates: start: 20181026, end: 20190415
  14. LANSOPRAZOLE. [Concomitant]
     Active Substance: LANSOPRAZOLE
     Dosage: 15 MG, DAILY
  15. CONIEL [Concomitant]
     Active Substance: BENIDIPINE HYDROCHLORIDE
  16. LULICON [Concomitant]
     Active Substance: LULICONAZOLE

REACTIONS (3)
  - Pneumocystis jirovecii pneumonia [Fatal]
  - Cardiac failure congestive [Fatal]
  - Hyperkalaemia [Fatal]

NARRATIVE: CASE EVENT DATE: 20190415
